FAERS Safety Report 7543610-5 (Version None)
Quarter: 2011Q2

REPORT INFORMATION
  Report Type: 
  Country: None (occurrence: None)
  Receive Date: 20110613
  Receipt Date: 20021121
  Transmission Date: 20111010
  Serious: Yes (Death, Hospitalization)
  Sender: FDA-Public Use
  Company Number: PHFR2002GB03338

PATIENT
  Sex: Male
  Weight: 69.841 kg

DRUGS (2)
  1. FUROSEMIDE [Concomitant]
     Indication: CARDIAC FAILURE CONGESTIVE
     Dosage: UNKNOWN
     Route: 048
     Dates: end: 20020929
  2. CLOZAPINE [Suspect]
     Indication: SCHIZOPHRENIA
     Dosage: UNKNOWN
     Route: 048
     Dates: start: 19920507, end: 20020929

REACTIONS (4)
  - MYOCARDIAL ISCHAEMIA [None]
  - PULMONARY INFARCTION [None]
  - DEEP VEIN THROMBOSIS [None]
  - LEFT VENTRICULAR FAILURE [None]
